FAERS Safety Report 20932693 (Version 10)
Quarter: 2024Q4

REPORT INFORMATION
  Report Type: Report from Study
  Country: US (occurrence: US)
  Receive Date: 20220608
  Receipt Date: 20241018
  Transmission Date: 20250115
  Serious: Yes (Other)
  Sender: NOVARTIS
  Company Number: US-002147023-NVSC2022US131456

PATIENT
  Sex: Female

DRUGS (2)
  1. COSENTYX [Suspect]
     Active Substance: SECUKINUMAB
     Indication: Psoriasis
     Dosage: 300 MG, QMO
     Route: 058
  2. COSENTYX [Suspect]
     Active Substance: SECUKINUMAB
     Dosage: UNK
     Route: 065

REACTIONS (9)
  - Breast cancer [Unknown]
  - Dizziness postural [Unknown]
  - Ear infection [Unknown]
  - Scratch [Unknown]
  - Pharyngitis [Unknown]
  - Rash pruritic [Unknown]
  - Vertigo [Unknown]
  - Depression [Unknown]
  - Psoriasis [Unknown]
